FAERS Safety Report 21314688 (Version 1)
Quarter: 2022Q3

REPORT INFORMATION
  Report Type: Spontaneous
  Country: US (occurrence: None)
  Receive Date: 20220909
  Receipt Date: 20220909
  Transmission Date: 20221027
  Serious: No
  Sender: FDA-Public Use
  Company Number: US-ARIS GLOBAL-202110-1923

PATIENT
  Sex: Female

DRUGS (15)
  1. OXERVATE [Suspect]
     Active Substance: CENEGERMIN-BKBJ
     Indication: Neurotrophic keratopathy
     Route: 047
     Dates: start: 20210811, end: 20211005
  2. HAIR, SKIN AND NAILS [Concomitant]
  3. BENADRYL [Concomitant]
     Active Substance: DIPHENHYDRAMINE HYDROCHLORIDE
  4. PATADAY ONCE DAILY RELIEF [Concomitant]
     Active Substance: OLOPATADINE HYDROCHLORIDE
  5. RETAINE MGD [Concomitant]
     Active Substance: LIGHT MINERAL OIL\MINERAL OIL
     Dosage: 0.5%-0.5%
  6. ERYTHROMYCIN [Concomitant]
     Active Substance: ERYTHROMYCIN
  7. XANAX [Concomitant]
     Active Substance: ALPRAZOLAM
  8. TYLENOL [Concomitant]
     Active Substance: ACETAMINOPHEN
  9. VITAMIN D3 [Concomitant]
     Active Substance: CHOLECALCIFEROL
  10. VITAMIN B12 [Concomitant]
     Active Substance: CYANOCOBALAMIN
  11. LUTEIN [Concomitant]
     Active Substance: LUTEIN
  12. PREDNISONE [Concomitant]
     Active Substance: PREDNISONE
  13. GABAPENTIN [Concomitant]
     Active Substance: GABAPENTIN
  14. CLONIDINE HYDROCHLORIDE [Concomitant]
     Active Substance: CLONIDINE HYDROCHLORIDE
  15. LOPRESSOR [Concomitant]
     Active Substance: METOPROLOL TARTRATE

REACTIONS (1)
  - Drug ineffective [Unknown]
